FAERS Safety Report 7772140 (Version 2)
Quarter: 2013Q4

REPORT INFORMATION
  Report Type: Report from Study
  Country: DE (occurrence: DE)
  Receive Date: 20110124
  Receipt Date: 20131031
  Transmission Date: 20140711
  Serious: Yes (Death, Hospitalization, Other)
  Sender: FDA-Public Use
  Company Number: PHHY2010DE02374

PATIENT
  Sex: Female

DRUGS (31)
  1. DAIVOBET [Concomitant]
     Indication: DERMATITIS ALLERGIC
     Dosage: UNK
     Dates: start: 200902
  2. METOPROLOL [Concomitant]
     Indication: HYPERTENSION
     Dosage: 95 MG, UNK
     Route: 048
     Dates: start: 20080514
  3. ONDANSETRON [Concomitant]
     Indication: NAUSEA
     Dosage: 4 MG, DAILY
     Route: 048
     Dates: start: 20081203
  4. LYRICA [Concomitant]
     Dates: start: 20090304, end: 20090310
  5. CLINDAMYCIN [Concomitant]
     Dates: start: 200904
  6. PASPERTIN                               /GFR/ [Concomitant]
     Dates: start: 20090603
  7. JURNISTA [Concomitant]
     Dosage: 8 MG, UNK
     Dates: start: 20090603
  8. JURNISTA [Concomitant]
     Dosage: 4 MG, UNK
     Dates: start: 20090603
  9. AMN107 [Suspect]
     Indication: CHRONIC MYELOID LEUKAEMIA
     Dosage: 800 MG, DAILY
     Route: 048
     Dates: start: 20080115, end: 20080122
  10. AMN107 [Suspect]
     Dosage: 400 MG, DAILY
     Route: 048
     Dates: start: 20080123, end: 20080212
  11. AMN107 [Suspect]
     Dosage: 200 MG, DAILY
     Route: 048
     Dates: start: 20080213, end: 20080215
  12. AMN107 [Suspect]
     Dosage: 200 MG, DAILY
     Route: 048
     Dates: start: 20080618, end: 20080625
  13. AMN107 [Suspect]
     Dosage: 114.8 MG, DAILY
     Route: 048
     Dates: start: 20080626, end: 20080703
  14. AMN107 [Suspect]
     Dosage: 114.3 MG, UNK
     Route: 048
     Dates: start: 20080729, end: 20080826
  15. AMN107 [Suspect]
     Dosage: 142.9 MG, DAILY
     Route: 048
     Dates: start: 20080827
  16. AMN107 [Suspect]
     Dosage: 200 MG, DAILY
     Route: 048
     Dates: start: 20090218, end: 20090309
  17. AMN107 [Suspect]
     Dosage: 171 MG, DAILY
     Route: 048
     Dates: start: 20090310, end: 20090330
  18. AMN107 [Suspect]
     Dosage: 342.86 MG, DAILY
     Route: 048
     Dates: start: 20090520, end: 20090610
  19. BUPRENORPHINE [Concomitant]
     Dosage: UNK
     Route: 062
     Dates: start: 20080122
  20. IBUPROFEN [Concomitant]
     Dosage: UNK
     Route: 048
     Dates: start: 20080129
  21. CIPROFLOXACIN [Concomitant]
     Dosage: 500 MG, UNK
     Route: 048
     Dates: start: 20080211, end: 20080226
  22. BLOOD TRANSFUSION, AUXILIARY PRODUCTS [Concomitant]
     Indication: ANAEMIA
     Dosage: UNK
  23. AMPHO-MORONAL [Concomitant]
     Dosage: UNK
     Dates: start: 20080215
  24. ZINC [Concomitant]
     Dosage: UNK
     Dates: start: 20080721
  25. ROXITHROMYCIN [Concomitant]
     Dosage: UNK
     Dates: start: 20080415
  26. LEVOCETIRIZINE [Concomitant]
     Dosage: UNK
     Dates: start: 20080514
  27. MOVICOL [Concomitant]
     Dosage: UNK
     Dates: start: 20080516
  28. ALLOPURINOL [Concomitant]
     Dosage: 150 MG, DAILY
     Dates: start: 20090331
  29. ALLOPURINOL [Concomitant]
     Dates: start: 20090331
  30. UBRETID [Concomitant]
     Dosage: 5 MG, UNK
     Dates: start: 200811
  31. CIMICIFUGA [Concomitant]
     Dosage: UNK
     Dates: start: 20081111

REACTIONS (27)
  - Blast crisis in myelogenous leukaemia [Fatal]
  - Anaemia [Fatal]
  - Pain [Fatal]
  - Thrombocytopenia [Fatal]
  - Peritonsillar abscess [Recovered/Resolved]
  - Neck pain [Recovered/Resolved]
  - Back pain [Recovered/Resolved]
  - Sweat gland disorder [Unknown]
  - Muscular weakness [Unknown]
  - Arthralgia [Unknown]
  - Asthenia [Unknown]
  - Dyspnoea exertional [Recovered/Resolved]
  - Pain in extremity [Not Recovered/Not Resolved]
  - Oedema peripheral [Unknown]
  - Hypotension [Unknown]
  - Tachycardia [Unknown]
  - Bronchitis [Recovered/Resolved]
  - Uterine disorder [Not Recovered/Not Resolved]
  - Urinary tract infection [Recovered/Resolved]
  - Tonsillitis [Recovered/Resolved]
  - Gastroenteritis [Recovered/Resolved]
  - Nasopharyngitis [Unknown]
  - Mucosal inflammation [Not Recovered/Not Resolved]
  - Epistaxis [Unknown]
  - Vomiting [Unknown]
  - Nausea [Not Recovered/Not Resolved]
  - Drug resistance [Unknown]
